FAERS Safety Report 4297891-4 (Version None)
Quarter: 2004Q1

REPORT INFORMATION
  Report Type: 
  Country: None (occurrence: None)
  Receive Date: 20040217
  Receipt Date: 20040217
  Transmission Date: 20041129
  Serious: No
  Sender: FDA-Public Use
  Company Number: None

PATIENT
  Sex: Female
  Weight: 66 kg

DRUGS (8)
  1. HUMIRA [Suspect]
     Indication: ARTHRITIS
     Dosage: 40 MG SC Q 2 WKS
     Route: 058
     Dates: start: 20030801, end: 20031001
  2. LEFLUNOMIDE [Concomitant]
  3. FEXOFENADINE HCL [Concomitant]
  4. VICODIN [Concomitant]
  5. ASPIRIN/IBUPROFEN [Concomitant]
  6. DICLOFENAC SODIUM [Concomitant]
  7. LOESTRIN 1.5/30 [Concomitant]
  8. TRIAMCINOLONE NASAL [Concomitant]

REACTIONS (2)
  - FOLLICULITIS [None]
  - RASH PRURITIC [None]
